FAERS Safety Report 9818161 (Version 1)
Quarter: 2014Q1

REPORT INFORMATION
  Report Type: Spontaneous
  Country: US (occurrence: US)
  Receive Date: 20140115
  Receipt Date: 20140115
  Transmission Date: 20141002
  Serious: Yes (Other)
  Sender: FDA-Public Use
  Company Number: US-NOVOPROD-397440

PATIENT
  Age: 60 Year
  Sex: Male

DRUGS (1)
  1. LEVEMIR [Suspect]
     Indication: TYPE 2 DIABETES MELLITUS
     Dosage: 40 UNITS IN AM AND 40 UNITS IN PM
     Route: 058

REACTIONS (1)
  - Atrial fibrillation [Not Recovered/Not Resolved]
